FAERS Safety Report 24095117 (Version 4)
Quarter: 2024Q4

REPORT INFORMATION
  Report Type: Report from Study
  Country: US (occurrence: US)
  Receive Date: 20240716
  Receipt Date: 20241017
  Transmission Date: 20250115
  Serious: No
  Sender: ROCHE
  Company Number: US-ROCHE-2570681

PATIENT
  Age: 62 Year
  Sex: Female

DRUGS (23)
  1. RITUXAN [Suspect]
     Active Substance: RITUXIMAB
     Indication: Myasthenia gravis
     Dosage: 500 MG/50 ML, LAST DOSE: 16/JUN/2021, DAY 1 DAY 15, PREMED TO INCLUDE SOIUMEDROL THEN 1. DOSE EVERY
     Route: 042
  2. RITUXAN [Suspect]
     Active Substance: RITUXIMAB
     Indication: Nervous system disorder
  3. RITUXAN [Suspect]
     Active Substance: RITUXIMAB
     Indication: Polyneuropathy
  4. RITUXAN [Suspect]
     Active Substance: RITUXIMAB
     Indication: Guillain-Barre syndrome
  5. ACCOLATE [Concomitant]
     Active Substance: ZAFIRLUKAST
     Indication: Asthma
     Dosage: 20 MG BID PO
     Route: 048
  6. ACYCLOVIR [Concomitant]
     Active Substance: ACYCLOVIR
     Dosage: 800 MG TID PO
     Route: 048
  7. ADDERALL [Concomitant]
     Active Substance: AMPHETAMINE ASPARTATE\AMPHETAMINE SULFATE\DEXTROAMPHETAMINE SACCHARATE\DEXTROAMPHETAMINE SULFATE
     Dosage: 20 MG ER DAILY STARTED -OCT-2017, -FEB-2018
     Route: 048
  8. ADVAIR DISKUS [Concomitant]
     Active Substance: FLUTICASONE PROPIONATE\SALMETEROL XINAFOATE
     Indication: Asthma
     Dosage: 250MCG/50MCG 1PUFF BID
     Route: 055
  9. BUMEX [Concomitant]
     Active Substance: BUMETANIDE
     Indication: Oedema peripheral
     Dosage: 1 MG DAILY PO
     Route: 048
  10. CARAFATE [Concomitant]
     Active Substance: SUCRALFATE
     Dosage: 1 GM QID PRN PO
     Route: 048
  11. ECOTRIN [Concomitant]
     Active Substance: ASPIRIN
     Dosage: 325 MG DAILY PO
     Route: 048
  12. FLEXERIL [Concomitant]
     Active Substance: CYCLOBENZAPRINE HYDROCHLORIDE
     Indication: Muscle relaxant therapy
     Dosage: 10 MG 1-2 TAB DURING THE DAY AND 2 TAB AT HS PO
     Route: 048
  13. FLONASE [Concomitant]
     Active Substance: FLUTICASONE PROPIONATE
     Indication: Asthma
     Dosage: 50 MCG 2 SQULRTS IN EACH NOSTRIL BID
     Route: 055
  14. K-TAB [Concomitant]
     Active Substance: POTASSIUM CHLORIDE
     Dosage: 20 MEQ 1 TABLETS DAILY PRN EXCESSIVE EDEMA + DIURESING
     Route: 048
  15. LINZESS [Concomitant]
     Active Substance: LINACLOTIDE
     Dosage: 145 MG DAILY  PO
     Route: 048
  16. LYRICA [Concomitant]
     Active Substance: PREGABALIN
     Indication: Neuropathy peripheral
     Dosage: 300MG TID  PO
     Route: 048
  17. PYRIDOSTIGMINE [Concomitant]
     Active Substance: PYRIDOSTIGMINE
     Indication: Myasthenia gravis
     Dosage: 60MG 1 TAB TID  PO
     Route: 048
  18. RESTASIS [Concomitant]
     Active Substance: CYCLOSPORINE
     Dosage: 0.05% BID  EYE DROPS
  19. ROPINIROLE [Concomitant]
     Active Substance: ROPINIROLE
     Indication: Restless legs syndrome
     Dosage: 2MG ER DAILY  PO
     Route: 048
  20. TYLENOL [Concomitant]
     Active Substance: ACETAMINOPHEN
     Indication: Pain
     Dosage: ALTERNATING WITH LBPROFIN 600 MG PO
     Route: 048
  21. XOPENEX HFA [Concomitant]
     Active Substance: LEVALBUTEROL TARTRATE
     Indication: Asthma
     Dosage: 45 MCG BED TIME AND PRN ASTHMA
     Route: 055
  22. SAVELLA [Concomitant]
     Active Substance: MILNACIPRAN HYDROCHLORIDE
     Indication: Pain
     Dosage: 50 MG  BID PO
     Route: 048
  23. DEXILANT [Concomitant]
     Active Substance: DEXLANSOPRAZOLE
     Indication: Gastrooesophageal reflux disease
     Route: 048

REACTIONS (2)
  - Off label use [Unknown]
  - No adverse event [Unknown]
